FAERS Safety Report 7337601-7 (Version None)
Quarter: 2011Q1

REPORT INFORMATION
  Report Type: 
  Country: None (occurrence: None)
  Receive Date: 20110308
  Receipt Date: 20110224
  Transmission Date: 20110831
  Serious: Yes (Other)
  Sender: FDA-Public Use
  Company Number: ZA-SANOFI-AVENTIS-2011SA002592

PATIENT
  Age: 50 Year
  Sex: Female
  Weight: 65.1 kg

DRUGS (12)
  1. ETHAMBUTOL HYDROCHLORIDE [Suspect]
     Indication: PULMONARY TUBERCULOSIS
     Dates: start: 20101022
  2. GLIBENCLAMIDE [Concomitant]
     Route: 048
     Dates: start: 20080101
  3. ASPIRIN [Concomitant]
     Route: 048
     Dates: start: 20101120
  4. RIFAMPICIN [Suspect]
  5. ISONIAZID [Suspect]
     Indication: PULMONARY TUBERCULOSIS
     Route: 048
     Dates: start: 20101022
  6. ISONIAZID [Suspect]
     Route: 048
  7. MOXIFLOXACIN [Suspect]
  8. PYRAZINAMIDE [Suspect]
     Indication: PULMONARY TUBERCULOSIS
     Dates: start: 20101022
  9. ADALAT CC [Concomitant]
     Route: 048
     Dates: start: 20080101
  10. RIFAMPICIN [Suspect]
     Indication: PULMONARY TUBERCULOSIS
     Dates: start: 20101022
  11. MOXIFLOXACIN [Suspect]
     Indication: PULMONARY TUBERCULOSIS
     Dates: start: 20101022
  12. PHARMAPRESS [Concomitant]
     Route: 048
     Dates: start: 20101126

REACTIONS (2)
  - VISUAL ACUITY REDUCED [None]
  - HYPOGLYCAEMIA [None]
